FAERS Safety Report 7782920-3 (Version None)
Quarter: 2011Q3

REPORT INFORMATION
  Report Type: 
  Country: None (occurrence: None)
  Receive Date: 20110928
  Receipt Date: 20110919
  Transmission Date: 20111222
  Serious: Yes (Other)
  Sender: FDA-Public Use
  Company Number: PHFR2011GB03912

PATIENT
  Sex: Male

DRUGS (5)
  1. CLOZAPINE [Suspect]
     Indication: SCHIZOPHRENIA
     Route: 065
     Dates: start: 19950615
  2. HYOSCINE [Concomitant]
     Dosage: 300 UG, TID
  3. LORAZEPAM [Concomitant]
     Dosage: 1 MG, QID
  4. CHLORAMBUCIL [Concomitant]
     Route: 065
  5. FLUOXETINE [Concomitant]
     Dosage: 30 MG, QD

REACTIONS (1)
  - NON-HODGKIN'S LYMPHOMA [None]
